FAERS Safety Report 6111483-3 (Version None)
Quarter: 2009Q1

REPORT INFORMATION
  Report Type: 
  Country: None (occurrence: None)
  Receive Date: 20090311
  Receipt Date: 20090302
  Transmission Date: 20090719
  Serious: Yes (Life-Threatening)
  Sender: FDA-Public Use
  Company Number: CO-ABBOTT-09P-036-0560017-00

PATIENT
  Age: 45 Year
  Sex: Female

DRUGS (1)
  1. ISORANE LIQUID FOR INHALATION [Suspect]
     Indication: INDUCTION AND MAINTENANCE OF ANAESTHESIA
     Dosage: RESP
     Dates: start: 20090227, end: 20090227

REACTIONS (2)
  - MYDRIASIS [None]
  - TACHYCARDIA [None]
